FAERS Safety Report 11897655 (Version 1)
Quarter: 2016Q1

REPORT INFORMATION
  Report Type: Spontaneous
  Country: US (occurrence: US)
  Receive Date: 20160108
  Receipt Date: 20160108
  Transmission Date: 20160526
  Serious: Yes (Other)
  Sender: FDA-Public Use
  Company Number: US-TEVA-623477USA

PATIENT
  Sex: Male
  Weight: 91.71 kg

DRUGS (2)
  1. LEVOFLOXACIN TABLETS, 500 MG [Suspect]
     Active Substance: LEVOFLOXACIN
     Indication: CYSTITIS
     Dosage: 500 MILLIGRAM DAILY;
     Route: 048
     Dates: start: 2015, end: 2015
  2. LEVAQUIN [Suspect]
     Active Substance: LEVOFLOXACIN
     Indication: CYSTITIS
     Dosage: 750 MILLIGRAM DAILY;
     Route: 048
     Dates: start: 201503, end: 2015

REACTIONS (8)
  - Musculoskeletal stiffness [None]
  - Pain [None]
  - Tendon discomfort [None]
  - Mobility decreased [None]
  - Asthenia [Not Recovered/Not Resolved]
  - Arthralgia [None]
  - Gait disturbance [Not Recovered/Not Resolved]
  - Abasia [None]

NARRATIVE: CASE EVENT DATE: 2015
